FAERS Safety Report 11126632 (Version 2)
Quarter: 2015Q2

REPORT INFORMATION
  Report Type: Spontaneous
  Country: US (occurrence: US)
  Receive Date: 20150520
  Receipt Date: 20150609
  Transmission Date: 20150821
  Serious: Yes (Hospitalization)
  Sender: FDA-Public Use
  Company Number: US-PFIZER INC-2015165849

PATIENT
  Age: 50 Year
  Sex: Male

DRUGS (2)
  1. CLINDAMYCIN PHOSPHATE. [Suspect]
     Active Substance: CLINDAMYCIN PHOSPHATE
     Indication: CYST REMOVAL
     Dosage: UNK, 1X/DAY
     Route: 042
     Dates: start: 20140728
  2. SODIUM CHLORIDE. [Suspect]
     Active Substance: SODIUM CHLORIDE
     Indication: CYST REMOVAL
     Dosage: UNK UNK, 1X/DAY
     Route: 042
     Dates: start: 20140728

REACTIONS (7)
  - Infusion site scar [Not Recovered/Not Resolved]
  - Vein disorder [Recovered/Resolved]
  - Vascular pain [Recovered/Resolved]
  - Hypersensitivity [Not Recovered/Not Resolved]
  - Vein disorder [Unknown]
  - Venous injury [Not Recovered/Not Resolved]
  - Phlebitis [Not Recovered/Not Resolved]

NARRATIVE: CASE EVENT DATE: 20140728
